FAERS Safety Report 15907929 (Version 1)
Quarter: 2019Q1

REPORT INFORMATION
  Report Type: Spontaneous
  Country: FR (occurrence: FR)
  Receive Date: 20190204
  Receipt Date: 20190204
  Transmission Date: 20190417
  Serious: Yes (Hospitalization, Congenital Anomaly, Other)
  Sender: FDA-Public Use
  Company Number: PHHY2019FR018225

PATIENT
  Sex: Male

DRUGS (4)
  1. DEPAKINE [Suspect]
     Active Substance: VALPROATE SODIUM
     Indication: FOETAL EXPOSURE DURING PREGNANCY
     Dosage: UNK
     Route: 064
  2. PROGESTIN [Concomitant]
     Active Substance: PROGESTERONE
     Indication: FOETAL EXPOSURE DURING PREGNANCY
     Dosage: UNK
     Route: 064
  3. CARBAMAZEPINE. [Suspect]
     Active Substance: CARBAMAZEPINE
     Indication: FOETAL EXPOSURE DURING PREGNANCY
     Dosage: UNK
     Route: 064
  4. ESTROGEN [Concomitant]
     Active Substance: ESTROGENS
     Indication: FOETAL EXPOSURE DURING PREGNANCY
     Dosage: UNK
     Route: 064

REACTIONS (12)
  - Cardiac disorder [Recovered/Resolved]
  - Cognitive disorder [Unknown]
  - Somatic symptom disorder [Unknown]
  - Speech disorder [Unknown]
  - Psychomotor retardation [Unknown]
  - Pneumonia [Recovered/Resolved]
  - Dysmorphism [Unknown]
  - Learning disability [Unknown]
  - Dysgraphia [Unknown]
  - Pleural effusion [Recovered/Resolved]
  - Inguinal hernia [Recovered/Resolved]
  - Foetal exposure during pregnancy [Unknown]

NARRATIVE: CASE EVENT DATE: 197912
